FAERS Safety Report 7961841-7 (Version None)
Quarter: 2011Q4

REPORT INFORMATION
  Report Type: 
  Country: None (occurrence: None)
  Receive Date: 20111207
  Receipt Date: 20111207
  Transmission Date: 20120403
  Serious: Yes (Life-Threatening)
  Sender: FDA-Public Use
  Company Number: None

PATIENT
  Age: 75 Year
  Sex: Female

DRUGS (1)
  1. PRADAXA [Suspect]
     Indication: ATRIAL FIBRILLATION
     Dosage: 75MG
     Route: 048
     Dates: start: 20110918, end: 20111113

REACTIONS (5)
  - DRUG ADMINISTRATION ERROR [None]
  - POST PROCEDURAL HAEMORRHAGE [None]
  - CREATININE RENAL CLEARANCE DECREASED [None]
  - HYPOTENSION [None]
  - COAGULOPATHY [None]
